FAERS Safety Report 8995897 (Version 3)
Quarter: 2014Q1

REPORT INFORMATION
  Report Type: Spontaneous
  Country: US (occurrence: US)
  Receive Date: 20130103
  Receipt Date: 20140214
  Transmission Date: 20141002
  Serious: Yes (Other)
  Sender: FDA-Public Use
  Company Number: US-ASTRAZENECA-2012SE95150

PATIENT
  Age: 86 Year
  Sex: Female
  Weight: 41.3 kg

DRUGS (13)
  1. NEXIUM [Suspect]
     Indication: GASTROOESOPHAGEAL REFLUX DISEASE
     Route: 048
     Dates: start: 2012
  2. CENTRUM SILVER [Concomitant]
     Indication: VITAMIN SUPPLEMENTATION
     Dosage: DAILY
     Dates: start: 1992
  3. CLONAZEPAM [Concomitant]
     Indication: ANXIETY
  4. CLONAZEPAM [Concomitant]
     Indication: TENSION
  5. BUPROPRION [Concomitant]
     Indication: MOOD ALTERED
  6. SYNTHROID [Concomitant]
     Indication: THYROID DISORDER
     Dates: start: 1999
  7. TRICOR [Concomitant]
  8. VITAMIN D [Concomitant]
     Indication: VITAMIN D ABNORMAL
  9. SIMVASTATIN [Concomitant]
     Indication: BLOOD CHOLESTEROL ABNORMAL
  10. ALIGN [Concomitant]
     Indication: DIARRHOEA
  11. ALIGN [Concomitant]
     Indication: ABDOMINAL PAIN UPPER
  12. MIRALAX [Concomitant]
     Indication: ABDOMINAL PAIN UPPER
  13. MIRALAX [Concomitant]
     Indication: DIARRHOEA

REACTIONS (18)
  - Fall [Unknown]
  - Lower limb fracture [Unknown]
  - Anaemia [Unknown]
  - Arthritis [Unknown]
  - Arthropathy [Unknown]
  - Sciatica [Unknown]
  - Nervousness [Unknown]
  - Breast pain [Unknown]
  - Stress [Unknown]
  - Mental disorder [Unknown]
  - Weight decreased [Unknown]
  - Eating disorder [Unknown]
  - Blood cholesterol abnormal [Unknown]
  - Thyroid disorder [Unknown]
  - Burning sensation [Unknown]
  - Abdominal pain upper [Unknown]
  - Diarrhoea [Unknown]
  - Muscular weakness [Unknown]
